FAERS Safety Report 9363147 (Version 1)
Quarter: 2013Q2

REPORT INFORMATION
  Report Type: Spontaneous
  Country: US (occurrence: None)
  Receive Date: 20130621
  Receipt Date: 20130621
  Transmission Date: 20140414
  Serious: Yes (Hospitalization)
  Sender: FDA-Public Use
  Company Number: None

PATIENT
  Age: 74 Year
  Sex: Female
  Weight: 51.08 kg

DRUGS (2)
  1. DOCETAXEL (TAXOTERE) [Suspect]
     Indication: TRANSITIONAL CELL CARCINOMA METASTATIC
     Dosage: 75 MG/M2 IV Q 3 WKS
     Route: 042
     Dates: start: 20130611
  2. LAPATINIB [Suspect]
     Indication: TRANSITIONAL CELL CARCINOMA METASTATIC
     Dosage: 1250 MG DAILY, ORAL
     Route: 048
     Dates: start: 20130611

REACTIONS (4)
  - Diarrhoea [None]
  - Nausea [None]
  - Dehydration [None]
  - Neutrophil count decreased [None]
